FAERS Safety Report 8058336-1 (Version None)
Quarter: 2012Q1

REPORT INFORMATION
  Report Type: 
  Country: None (occurrence: None)
  Receive Date: 20120120
  Receipt Date: 20120110
  Transmission Date: 20120608
  Serious: Yes (Hospitalization)
  Sender: FDA-Public Use
  Company Number: FR-JNJFOC-20120104254

PATIENT
  Sex: Male
  Weight: 33.4 kg

DRUGS (3)
  1. REMICADE [Suspect]
     Indication: CROHN'S DISEASE
     Route: 042
     Dates: start: 20090729, end: 20100708
  2. SIROLIMUS [Concomitant]
  3. HYDROCORTISONE [Concomitant]

REACTIONS (1)
  - CROHN'S DISEASE [None]
